FAERS Safety Report 6115976-4 (Version None)
Quarter: 2009Q1

REPORT INFORMATION
  Report Type: 
  Country: None (occurrence: None)
  Receive Date: 20090314
  Receipt Date: 20081204
  Transmission Date: 20090719
  Serious: No
  Sender: FDA-Public Use
  Company Number: US-ABBOTT-08P-163-0476310-00

PATIENT

DRUGS (4)
  1. HUMIRA [Suspect]
     Indication: DRUG EXPOSURE DURING PREGNANCY
     Route: 064
  2. ERYTHROMYCIN BASE [Suspect]
     Indication: DRUG EXPOSURE DURING PREGNANCY
     Route: 064
  3. ERYTHROMYCIN BASE [Suspect]
     Dates: start: 20081204
  4. UNKNOWN INHALER [Concomitant]
     Indication: BRONCHITIS
     Dates: start: 20081101

REACTIONS (1)
  - DRUG EXPOSURE DURING PREGNANCY [None]
